FAERS Safety Report 7077102-7 (Version None)
Quarter: 2010Q4

REPORT INFORMATION
  Report Type: 
  Country: None (occurrence: None)
  Receive Date: 20101101
  Receipt Date: 20101021
  Transmission Date: 20110411
  Serious: Yes (Other)
  Sender: FDA-Public Use
  Company Number: PHHY2010JP68815

PATIENT
  Age: 64 Year
  Sex: Male

DRUGS (3)
  1. CYCLOSPORINE [Suspect]
     Indication: APLASIA PURE RED CELL
     Dosage: UNK
  2. PREDNISOLONE [Concomitant]
     Indication: APLASIA PURE RED CELL
  3. NORMAL HUMAN IMMUNOGLOBULIN [Concomitant]
     Indication: HYPOGAMMAGLOBULINAEMIA

REACTIONS (8)
  - CONDITION AGGRAVATED [None]
  - CYTOMEGALOVIRUS INFECTION [None]
  - DRUG INEFFECTIVE [None]
  - GLOSSITIS [None]
  - GLOSSODYNIA [None]
  - HERPES SIMPLEX [None]
  - ORAL LICHEN PLANUS [None]
  - TONGUE ULCERATION [None]
